FAERS Safety Report 16625463 (Version 2)
Quarter: 2020Q2

REPORT INFORMATION
  Report Type: Spontaneous
  Country: US (occurrence: US)
  Receive Date: 20190724
  Receipt Date: 20200422
  Transmission Date: 20200713
  Serious: No
  Sender: FDA-Public Use
  Company Number: US-PFIZER INC-2019313878

PATIENT
  Age: 64 Year
  Sex: Female

DRUGS (1)
  1. XELJANZ [Suspect]
     Active Substance: TOFACITINIB CITRATE
     Indication: ALOPECIA
     Dosage: 10 MG, UNK

REACTIONS (4)
  - Product use in unapproved indication [Unknown]
  - Condition aggravated [Unknown]
  - Off label use [Unknown]
  - Drug effective for unapproved indication [Unknown]
